FAERS Safety Report 26171483 (Version 1)
Quarter: 2025Q4

REPORT INFORMATION
  Report Type: Spontaneous
  Country: US (occurrence: US)
  Receive Date: 20251217
  Receipt Date: 20251217
  Transmission Date: 20260118
  Serious: No
  Sender: JOHNSON AND JOHNSON
  Company Number: US-JNJFOC-20251201191

PATIENT
  Sex: Male

DRUGS (2)
  1. INLEXZO [Suspect]
     Active Substance: GEMCITABINE
     Indication: Bladder cancer
     Dates: start: 20251124, end: 20251201
  2. INLEXZO [Suspect]
     Active Substance: GEMCITABINE

REACTIONS (4)
  - Hypertonic bladder [Recovering/Resolving]
  - Bladder spasm [Recovering/Resolving]
  - Cystitis noninfective [Unknown]
  - Mucosal exfoliation [Unknown]

NARRATIVE: CASE EVENT DATE: 20251126
